FAERS Safety Report 17078605 (Version 2)
Quarter: 2020Q2

REPORT INFORMATION
  Report Type: Spontaneous
  Country: US (occurrence: US)
  Receive Date: 20191127
  Receipt Date: 20200501
  Transmission Date: 20200713
  Serious: Yes (Life-Threatening, Hospitalization, Other)
  Sender: FDA-Public Use
  Company Number: US-AUROBINDO-AUR-APL-2019-073606

PATIENT
  Age: 9 Day
  Sex: Male

DRUGS (16)
  1. LIDOCAINE. [Suspect]
     Active Substance: LIDOCAINE
     Indication: PULMONARY VALVE STENOSIS
     Dosage: UNK
     Route: 065
  2. PROCAINAMIDE [Suspect]
     Active Substance: PROCAINAMIDE HYDROCHLORIDE
     Indication: VENTRICULAR TACHYCARDIA
  3. PROCAINAMIDE [Suspect]
     Active Substance: PROCAINAMIDE HYDROCHLORIDE
     Indication: SINUS TACHYCARDIA
  4. AMIODARONE HYDROCHLORIDE. [Suspect]
     Active Substance: AMIODARONE HYDROCHLORIDE
     Indication: RIGHT VENTRICULAR DYSFUNCTION
     Dosage: 15 MICROGRAM/KILOGRAM, 1 MINUTE
     Route: 065
  5. AMIODARONE HYDROCHLORIDE. [Suspect]
     Active Substance: AMIODARONE HYDROCHLORIDE
     Indication: PULMONARY VALVE STENOSIS
     Dosage: UNK
     Route: 065
  6. PROCAINAMIDE [Suspect]
     Active Substance: PROCAINAMIDE HYDROCHLORIDE
     Indication: PULMONARY VALVE STENOSIS
     Dosage: UNK
     Route: 065
  7. PROCAINAMIDE [Suspect]
     Active Substance: PROCAINAMIDE HYDROCHLORIDE
     Indication: RIGHT VENTRICULAR DYSFUNCTION
  8. ESMOLOL [Suspect]
     Active Substance: ESMOLOL HYDROCHLORIDE
     Indication: RIGHT VENTRICULAR DYSFUNCTION
  9. ESMOLOL [Suspect]
     Active Substance: ESMOLOL HYDROCHLORIDE
     Indication: SINUS TACHYCARDIA
  10. LIDOCAINE. [Suspect]
     Active Substance: LIDOCAINE
     Indication: VENTRICULAR TACHYCARDIA
  11. ESMOLOL [Suspect]
     Active Substance: ESMOLOL HYDROCHLORIDE
     Indication: PULMONARY VALVE STENOSIS
  12. LIDOCAINE. [Suspect]
     Active Substance: LIDOCAINE
     Indication: RIGHT VENTRICULAR DYSFUNCTION
  13. AMIODARONE HYDROCHLORIDE. [Suspect]
     Active Substance: AMIODARONE HYDROCHLORIDE
     Indication: SINUS TACHYCARDIA
     Dosage: 20 MICROGRAM/KILOGRAM, 1 MINUTE,DOSE INCREMENTALLY ESCALATED TO A MAXIMUM OF 20 MCG/KG/MINUTE
     Route: 065
  14. ESMOLOL [Suspect]
     Active Substance: ESMOLOL HYDROCHLORIDE
     Indication: VENTRICULAR TACHYCARDIA
     Dosage: UNK
     Route: 065
  15. AMIODARONE HYDROCHLORIDE. [Suspect]
     Active Substance: AMIODARONE HYDROCHLORIDE
     Indication: VENTRICULAR TACHYCARDIA
  16. LIDOCAINE. [Suspect]
     Active Substance: LIDOCAINE
     Indication: SINUS TACHYCARDIA

REACTIONS (1)
  - Drug ineffective [Recovered/Resolved]
